FAERS Safety Report 19684905 (Version 1)
Quarter: 2021Q3

REPORT INFORMATION
  Report Type: Spontaneous
  Country: US (occurrence: US)
  Receive Date: 20210810
  Receipt Date: 20210810
  Transmission Date: 20211014
  Serious: Yes (Hospitalization)
  Sender: FDA-Public Use
  Company Number: None

PATIENT

DRUGS (2)
  1. RETACRIT [Suspect]
     Active Substance: EPOETIN ALFA-EPBX
     Dosage: ?          OTHER STRENGTH:40000/5 UNITS/ML;?
  2. PROCRIT [Suspect]
     Active Substance: ERYTHROPOIETIN
     Dosage: ?          OTHER STRENGTH:20000 UNITS/ML;?
     Route: 058

REACTIONS (3)
  - Intercepted product dispensing error [None]
  - Wrong strength [None]
  - Circumstance or information capable of leading to medication error [None]
